FAERS Safety Report 7366921-5 (Version None)
Quarter: 2011Q1

REPORT INFORMATION
  Report Type: 
  Country: None (occurrence: None)
  Receive Date: 20110322
  Receipt Date: 20110314
  Transmission Date: 20110831
  Serious: Yes (Hospitalization)
  Sender: FDA-Public Use
  Company Number: B0705705A

PATIENT
  Sex: Female
  Weight: 35 kg

DRUGS (11)
  1. AUGMENTIN '125' [Concomitant]
     Dosage: 1G THREE TIMES PER DAY
     Route: 065
     Dates: start: 20110112, end: 20110117
  2. FUNGIZONE [Concomitant]
     Route: 048
     Dates: start: 20110113
  3. FOSFOMYCINE [Concomitant]
     Dosage: 200MGK PER DAY
     Route: 065
     Dates: start: 20110117, end: 20110120
  4. FORTIMEL [Concomitant]
     Route: 065
     Dates: start: 20110101
  5. SEVOFLURANE [Concomitant]
     Route: 065
     Dates: start: 20110112
  6. CLAFORAN [Concomitant]
     Dosage: 300MGK PER DAY
     Route: 065
     Dates: start: 20110117, end: 20110120
  7. ACETAMINOPHEN [Concomitant]
     Dosage: 500MG PER DAY
     Route: 065
     Dates: start: 20110112, end: 20110117
  8. ZONEGRAN [Suspect]
     Dosage: 100MG THREE TIMES PER DAY
     Route: 048
     Dates: start: 20101212, end: 20110120
  9. DIPRIVAN [Concomitant]
     Route: 065
     Dates: start: 20110112
  10. LEVOTHYROX [Concomitant]
     Route: 065
  11. LAMICTAL [Suspect]
     Route: 048
     Dates: start: 20080101, end: 20110120

REACTIONS (13)
  - VOMITING [None]
  - HEPATIC FAILURE [None]
  - SHOCK [None]
  - MYELOCYTOSIS [None]
  - DECREASED APPETITE [None]
  - PYREXIA [None]
  - LEUKOCYTOSIS [None]
  - ALTERED STATE OF CONSCIOUSNESS [None]
  - HEPATOCELLULAR INJURY [None]
  - ORAL CANDIDIASIS [None]
  - HEPATIC ISCHAEMIA [None]
  - TRANSAMINASES INCREASED [None]
  - DEHYDRATION [None]
